FAERS Safety Report 4336604-4 (Version None)
Quarter: 2004Q2

REPORT INFORMATION
  Report Type: 
  Country: None (occurrence: None)
  Receive Date: 20040409
  Receipt Date: 20040409
  Transmission Date: 20050107
  Serious: Yes (Hospitalization)
  Sender: FDA-Public Use
  Company Number: None

PATIENT
  Sex: Male
  Weight: 22.5 kg

DRUGS (3)
  1. STRATTERA [Suspect]
     Indication: ATTENTION DEFICIT/HYPERACTIVITY DISORDER
     Dosage: 18 MG DAILY   ORAL
     Route: 048
     Dates: start: 20040406, end: 20040408
  2. DEPAKENE [Concomitant]
  3. RISPERDAL [Concomitant]

REACTIONS (1)
  - ANGIONEUROTIC OEDEMA [None]
